FAERS Safety Report 6484422-3 (Version None)
Quarter: 2009Q4

REPORT INFORMATION
  Report Type: 
  Country: None (occurrence: None)
  Receive Date: 20091209
  Receipt Date: 20091207
  Transmission Date: 20100525
  Serious: Yes (Hospitalization)
  Sender: FDA-Public Use
  Company Number: US-B.I. PHARMACEUTICALS,INC./RIDGEFIELD-2009-BP-14091BP

PATIENT
  Sex: Female

DRUGS (2)
  1. SPIRIVA [Suspect]
     Indication: CHRONIC OBSTRUCTIVE PULMONARY DISEASE
     Dosage: 18 MCG
     Route: 055
     Dates: start: 19990101
  2. VITAMINS [Concomitant]
     Indication: PROPHYLAXIS

REACTIONS (4)
  - BACTERIAL TEST [None]
  - DIABETES MELLITUS [None]
  - HEADACHE [None]
  - NASOPHARYNGITIS [None]
